FAERS Safety Report 6434463-7 (Version None)
Quarter: 2009Q4

REPORT INFORMATION
  Report Type: 
  Country: None (occurrence: None)
  Receive Date: 20091110
  Receipt Date: 20091029
  Transmission Date: 20100525
  Serious: Yes (Death, Other)
  Sender: FDA-Public Use
  Company Number: JP-PFIZER INC-2009211396

PATIENT

DRUGS (3)
  1. DIFLUCAN [Suspect]
     Route: 042
     Dates: start: 20090420
  2. SOLU-CORTEF [Concomitant]
  3. RINDERON [Concomitant]

REACTIONS (9)
  - ABNORMAL BEHAVIOUR [None]
  - AGGRESSION [None]
  - ASTHENIA [None]
  - CONFUSIONAL STATE [None]
  - DELIRIUM [None]
  - DIFFERENTIAL WHITE BLOOD CELL COUNT ABNORMAL [None]
  - HYPONATRAEMIA [None]
  - MALAISE [None]
  - MELAENA [None]
